FAERS Safety Report 16234824 (Version 1)
Quarter: 2019Q2

REPORT INFORMATION
  Report Type: Report from Study
  Country: GR (occurrence: GR)
  Receive Date: 20190424
  Receipt Date: 20190424
  Transmission Date: 20190711
  Serious: Yes (Other)
  Sender: FDA-Public Use
  Company Number: GR-TAKEDA-2019TUS024685

PATIENT
  Age: 26 Year
  Sex: Male
  Weight: 48 kg

DRUGS (6)
  1. CLEXANE [Concomitant]
     Active Substance: ENOXAPARIN SODIUM
     Indication: COLITIS ULCERATIVE
     Dosage: 40 MILLIGRAM
     Route: 058
     Dates: start: 20190314, end: 20190329
  2. SOLU-MEDROL [Concomitant]
     Active Substance: METHYLPREDNISOLONE SODIUM SUCCINATE
     Indication: COLITIS ULCERATIVE
     Dosage: 60 MILLIGRAM
     Route: 042
     Dates: start: 20190314, end: 20190325
  3. IDEOS [Concomitant]
     Active Substance: CALCIUM CARBONATE\CHOLECALCIFEROL
     Indication: PROPHYLAXIS
     Dosage: UNK
     Route: 048
     Dates: start: 20190314
  4. VEDOLIZUMAB [Suspect]
     Active Substance: VEDOLIZUMAB
     Indication: COLITIS ULCERATIVE
     Dosage: 300 MILLIGRAM
     Route: 042
     Dates: start: 20190329
  5. PREZOLON [Concomitant]
     Active Substance: PREDNISOLONE
     Indication: COLITIS ULCERATIVE
     Dosage: UNK
     Route: 048
     Dates: start: 20190326
  6. COLPOCIN T [Concomitant]
     Indication: COLITIS ULCERATIVE
     Dosage: 500 MILLIGRAM, TID
     Route: 042
     Dates: start: 20190315, end: 20190325

REACTIONS (1)
  - Hepatic enzyme increased [Not Recovered/Not Resolved]

NARRATIVE: CASE EVENT DATE: 20190412
